FAERS Safety Report 8233776-6 (Version None)
Quarter: 2012Q1

REPORT INFORMATION
  Report Type: 
  Country: None (occurrence: None)
  Receive Date: 20120326
  Receipt Date: 20120322
  Transmission Date: 20120608
  Serious: Yes (Other)
  Sender: FDA-Public Use
  Company Number: PHHY2012NL025115

PATIENT
  Sex: Male

DRUGS (4)
  1. ZOMETA [Suspect]
     Dosage: 4 MG/ 100 ML, 1X PER 28 DAYS
     Dates: start: 20120125
  2. ZOMETA [Suspect]
     Dosage: 4 MG/ 100 ML, 1X PER 28 DAYS
     Dates: start: 20101130
  3. ZOMETA [Suspect]
     Dosage: 4 MG/ 100 ML, 1X PER 28 DAYS
     Dates: start: 20120221
  4. ZOMETA [Suspect]
     Indication: PROSTATE CANCER METASTATIC
     Dosage: 4 MG/ 100 ML, 1X PER 28 DAYS

REACTIONS (1)
  - TERMINAL STATE [None]
